FAERS Safety Report 10496000 (Version 1)
Quarter: 2014Q4

REPORT INFORMATION
  Report Type: Spontaneous
  Country: US (occurrence: US)
  Receive Date: 20141003
  Receipt Date: 20141003
  Transmission Date: 20150528
  Serious: Yes (Life-Threatening, Hospitalization, Other)
  Sender: FDA-Public Use
  Company Number: US-ASTRAZENECA-2014SE72944

PATIENT
  Age: 69 Year
  Sex: Female
  Weight: 76.7 kg

DRUGS (8)
  1. ALBUTEROL. [Concomitant]
     Active Substance: ALBUTEROL
     Indication: ASTHMA
  2. OMEPRAZOLE. [Suspect]
     Active Substance: OMEPRAZOLE
     Indication: GASTRIC DISORDER
     Route: 048
  3. SPIRIVA [Concomitant]
     Active Substance: TIOTROPIUM BROMIDE MONOHYDRATE
  4. ASPIRIN. [Concomitant]
     Active Substance: ASPIRIN
  5. LOSARTAN [Concomitant]
     Active Substance: LOSARTAN
     Indication: CARDIAC DISORDER
  6. LEXAPRO [Concomitant]
     Active Substance: ESCITALOPRAM OXALATE
  7. SYMBICORT [Suspect]
     Active Substance: BUDESONIDE\FORMOTEROL FUMARATE DIHYDRATE
     Indication: CHRONIC OBSTRUCTIVE PULMONARY DISEASE
     Dosage: 360 MCG, TWO TIMES A DAY
     Route: 055
     Dates: start: 2004
  8. XOPENEX [Concomitant]
     Active Substance: LEVALBUTEROL HYDROCHLORIDE

REACTIONS (6)
  - Apparent death [Unknown]
  - Bedridden [Unknown]
  - Intentional product misuse [Unknown]
  - Retinal vascular thrombosis [Unknown]
  - Cataract [Unknown]
  - Product use issue [Unknown]

NARRATIVE: CASE EVENT DATE: 2008
